FAERS Safety Report 17388871 (Version 1)
Quarter: 2020Q1

REPORT INFORMATION
  Report Type: Spontaneous
  Country: US (occurrence: US)
  Receive Date: 20200123
  Receipt Date: 20200123
  Transmission Date: 20200409
  Serious: Yes (Hospitalization)
  Sender: FDA-Public Use
  Company Number: None

PATIENT
  Age: 69 Year
  Sex: Male

DRUGS (1)
  1. HUMIRA [Suspect]
     Active Substance: ADALIMUMAB
     Route: 058
     Dates: start: 20191107

REACTIONS (4)
  - Arthralgia [None]
  - Vomiting [None]
  - Pyrexia [None]
  - Intestinal obstruction [None]

NARRATIVE: CASE EVENT DATE: 20191201
